FAERS Safety Report 11071159 (Version 1)
Quarter: 2015Q2

REPORT INFORMATION
  Report Type: Spontaneous
  Country: JP (occurrence: JP)
  Receive Date: 20150428
  Receipt Date: 20150428
  Transmission Date: 20150821
  Serious: Yes (Other)
  Sender: FDA-Public Use
  Company Number: JP-JNJFOC-20150420723

PATIENT

DRUGS (1)
  1. ITRIZOLE [Suspect]
     Active Substance: ITRACONAZOLE
     Indication: PRODUCT USED FOR UNKNOWN INDICATION
     Route: 048

REACTIONS (6)
  - Renal disorder [Unknown]
  - Diarrhoea [Unknown]
  - Liver disorder [Unknown]
  - Neutrophil count decreased [Unknown]
  - Drug level decreased [Unknown]
  - Electrolyte imbalance [Unknown]
